FAERS Safety Report 8172193-4 (Version None)
Quarter: 2012Q1

REPORT INFORMATION
  Report Type: 
  Country: None (occurrence: None)
  Receive Date: 20120228
  Receipt Date: 20120220
  Transmission Date: 20120608
  Serious: Yes (Other)
  Sender: FDA-Public Use
  Company Number: US-ASTRAZENECA-2012SE11841

PATIENT
  Age: 80 Year
  Sex: Female
  Weight: 46.3 kg

DRUGS (5)
  1. WARFARIN SODIUM [Concomitant]
  2. PULMICORT [Suspect]
     Indication: LUNG DISORDER
     Dosage: 0.25 MG/2ML, SIX TIMES A WEEK
     Route: 055
  3. IPRATROPIUM BROMIDE AND ALBUTERAL SULFATE [Concomitant]
     Dosage: 0.5 MG/0.3 MG
  4. ALBUTEROL [Concomitant]
  5. PREDOXA [Concomitant]
     Indication: ANTICOAGULANT THERAPY

REACTIONS (7)
  - OFF LABEL USE [None]
  - RENAL HAEMORRHAGE [None]
  - HAEMATOCHEZIA [None]
  - DRUG DOSE OMISSION [None]
  - EPISTAXIS [None]
  - FRACTURE [None]
  - COMPRESSION FRACTURE [None]
